FAERS Safety Report 6339003-9 (Version None)
Quarter: 2009Q3

REPORT INFORMATION
  Report Type: 
  Country: None (occurrence: None)
  Receive Date: 20090903
  Receipt Date: 20090828
  Transmission Date: 20100115
  Serious: Yes (Death, Other)
  Sender: FDA-Public Use
  Company Number: PHHO2009AT10641

PATIENT
  Sex: Female
  Weight: 63 kg

DRUGS (4)
  1. AMN107 AMN+CAP [Suspect]
     Indication: GASTROINTESTINAL STROMAL TUMOUR
     Dosage: 800 MG
     Route: 048
     Dates: start: 20090730, end: 20090826
  2. AMN107 AMN+CAP [Suspect]
     Dosage: 400 MG
     Route: 048
     Dates: start: 20090827
  3. RAMIPRIL [Concomitant]
     Indication: HYPERTENSION
     Dosage: UNK
  4. TEBOFORTAN [Concomitant]
     Dosage: UNK

REACTIONS (2)
  - CARDIAC ARREST [None]
  - HYPERBILIRUBINAEMIA [None]
